FAERS Safety Report 4946175-7 (Version None)
Quarter: 2006Q1

REPORT INFORMATION
  Report Type: 
  Country: None (occurrence: None)
  Receive Date: 20060118
  Receipt Date: 20050401
  Transmission Date: 20060701
  Serious: Yes (Other)
  Sender: FDA-Public Use
  Company Number: US-JNJFOC-20050302618

PATIENT
  Age: 38 Year
  Sex: Female
  Weight: 62.5964 kg

DRUGS (6)
  1. DOXIL [Suspect]
     Indication: UTERINE CANCER
     Dosage: 50 MG/M2, INTRAVENOUS
     Route: 042
     Dates: start: 20050310, end: 20050310
  2. BENADRYL [Concomitant]
  3. DECADRON [Concomitant]
  4. PEPCID [Concomitant]
  5. SALINE (SALINE MIXTURE) [Concomitant]
  6. .. [Concomitant]

REACTIONS (1)
  - INFUSION RELATED REACTION [None]
